FAERS Safety Report 5710911-2 (Version None)
Quarter: 2008Q2

REPORT INFORMATION
  Report Type: 
  Country: None (occurrence: None)
  Receive Date: 20080421
  Receipt Date: 20080415
  Transmission Date: 20081010
  Serious: Yes (Other)
  Sender: FDA-Public Use
  Company Number: US-KINGPHARMUSA00001-K200800419

PATIENT

DRUGS (2)
  1. PENICILLIN G PROCAINE [Suspect]
     Indication: PHARYNGOLARYNGEAL PAIN
     Dosage: UNK, SINGLE
     Dates: start: 19780101, end: 19780101
  2. UNSPECIFIED MEDICATION [Concomitant]

REACTIONS (1)
  - LOSS OF CONSCIOUSNESS [None]
